FAERS Safety Report 5919259-4 (Version None)
Quarter: 2008Q4

REPORT INFORMATION
  Report Type: 
  Country: None (occurrence: None)
  Receive Date: 20081010
  Receipt Date: 20080926
  Transmission Date: 20090506
  Serious: Yes (Other)
  Sender: FDA-Public Use
  Company Number: 2008S1017560

PATIENT
  Age: 67 Year
  Sex: Female

DRUGS (3)
  1. AZATHIOPRINE [Suspect]
     Indication: MYASTHENIA GRAVIS
     Dates: start: 20080610
  2. METAMIZOL /00039501/ (METAMIZOLE SODIUM) [Suspect]
     Indication: PAIN
     Dates: start: 20080528, end: 20080605
  3. OMEPRAZOLE (OMPRAZOLE) [Concomitant]

REACTIONS (2)
  - GAMMA-GLUTAMYLTRANSFERASE INCREASED [None]
  - PANCYTOPENIA [None]
